FAERS Safety Report 8179073-9 (Version None)
Quarter: 2012Q1

REPORT INFORMATION
  Report Type: 
  Country: None (occurrence: None)
  Receive Date: 20120302
  Receipt Date: 20110427
  Transmission Date: 20120608
  Serious: Yes (Hospitalization, Other)
  Sender: FDA-Public Use
  Company Number: FR-ROCHE-1044596

PATIENT
  Sex: Female

DRUGS (3)
  1. HYDROCORTISONE [Suspect]
     Indication: PRODUCT USED FOR UNKNOWN INDICATION
     Dosage: 15 MG 1 IN 1
     Dates: start: 19891201
  2. LEVOTHYROXINE SODIUM [Concomitant]
     Dosage: 100 MG 1 IN 1
     Dates: start: 19891201
  3. SOMATROPIN [Suspect]
     Indication: PRODUCT USED FOR UNKNOWN INDICATION
     Route: 058
     Dates: start: 20051210

REACTIONS (4)
  - LEUKOPENIA [None]
  - ADRENAL INSUFFICIENCY [None]
  - NEUTROPENIA [None]
  - BACTERIAL INFECTION [None]
